FAERS Safety Report 10575878 (Version 1)
Quarter: 2014Q4

REPORT INFORMATION
  Report Type: Report from Study
  Country: BR (occurrence: BR)
  Receive Date: 20141111
  Receipt Date: 20141111
  Transmission Date: 20150529
  Serious: Yes (Hospitalization, Other)
  Sender: FDA-Public Use
  Company Number: PHHY2014BR146204

PATIENT
  Sex: Female
  Weight: 14 kg

DRUGS (3)
  1. ILARIS [Suspect]
     Active Substance: CANAKINUMAB
     Indication: CRYOPYRIN ASSOCIATED PERIODIC SYNDROME
     Dosage: UNK
     Route: 058
     Dates: start: 201410
  2. COLD CREAM [Concomitant]
     Active Substance: COLD CREAM
     Indication: DRY SKIN
     Dosage: UNK
     Route: 065
     Dates: start: 201109
  3. CEPHALEXIN. [Concomitant]
     Active Substance: CEPHALEXIN
     Indication: INFECTION
     Dosage: 6 ML, QD
     Route: 065
     Dates: start: 2013

REACTIONS (6)
  - Synovial cyst [Recovering/Resolving]
  - Pruritus [Recovering/Resolving]
  - Pyrexia [Recovering/Resolving]
  - Purulence [Recovering/Resolving]
  - Nail infection [Recovering/Resolving]
  - Onychomadesis [Recovering/Resolving]
